FAERS Safety Report 14277402 (Version 4)
Quarter: 2018Q1

REPORT INFORMATION
  Report Type: Report from Study
  Country: DE (occurrence: DE)
  Receive Date: 20171212
  Receipt Date: 20180219
  Transmission Date: 20180508
  Serious: Yes (Hospitalization)
  Sender: FDA-Public Use
  Company Number: DE-ROCHE-2031117

PATIENT
  Age: 54 Year
  Sex: Male
  Weight: 70 kg

DRUGS (12)
  1. OMEPRAZOL [Concomitant]
     Active Substance: OMEPRAZOLE
     Indication: DYSPEPSIA
     Route: 048
     Dates: start: 20070101
  2. ARCOXIA [Concomitant]
     Active Substance: ETORICOXIB
     Indication: ARTHRALGIA
     Route: 065
     Dates: start: 20171221
  3. NOVALGIN (METAMIZOLE SODIUM) [Concomitant]
     Active Substance: METAMIZOLE SODIUM
     Route: 065
     Dates: start: 20171229
  4. CELEBREX [Concomitant]
     Active Substance: CELECOXIB
     Indication: PAIN IN EXTREMITY
  5. COBIMETINIB. [Suspect]
     Active Substance: COBIMETINIB
     Indication: MALIGNANT MELANOMA
     Dosage: DATE OF MOST RECENT DOSE 60 MG PRIOR TO REMOVAL OF TWO FILAMENTS AFTER RUPTURE OF THE SCAPHOLUNATE L
     Route: 048
     Dates: start: 20171011
  6. ATEZOLIZUMAB. [Suspect]
     Active Substance: ATEZOLIZUMAB
     Indication: MALIGNANT MELANOMA
     Dosage: DATE OF MOST RECENT DOSE PRIOR TO EVENT REMOVAL OF TWO FILAMENTS AFTER RUPTURE OF THE SCAPHOLUNATE L
     Route: 042
     Dates: start: 20171108
  7. TAVOR (LORAZEPAM) [Concomitant]
     Active Substance: LORAZEPAM
     Indication: SLEEP DISORDER
     Route: 048
     Dates: start: 20160101
  8. CERTOPARIN SODIUM [Concomitant]
     Active Substance: CERTOPARIN SODIUM
     Indication: THROMBOSIS
     Route: 065
     Dates: start: 20171122
  9. IBUPROFEN. [Concomitant]
     Active Substance: IBUPROFEN
     Indication: ARTHRALGIA
     Route: 065
     Dates: start: 20171213, end: 20171220
  10. CELEBREX [Concomitant]
     Active Substance: CELECOXIB
     Indication: ARTHRALGIA
     Route: 048
     Dates: start: 20180201
  11. NOVALGIN (METAMIZOLE SODIUM) [Concomitant]
     Active Substance: METAMIZOLE SODIUM
     Indication: ARTHRALGIA
     Route: 065
     Dates: start: 20171224, end: 20171224
  12. VEMURAFENIB. [Suspect]
     Active Substance: VEMURAFENIB
     Indication: MALIGNANT MELANOMA
     Dosage: DATE OF MOST RECENT DOSE 4 TABLETS PRIOR TO EVENT REMOVAL OF TWO FILAMENTS AFTER RUPTURE OF THE SCAP
     Route: 048
     Dates: start: 20171011

REACTIONS (3)
  - Shock [Recovered/Resolved]
  - Left ventricular dysfunction [Not Recovered/Not Resolved]
  - Ligament operation [Recovered/Resolved]

NARRATIVE: CASE EVENT DATE: 20171121
